FAERS Safety Report 15803405 (Version 1)
Quarter: 2019Q1

REPORT INFORMATION
  Report Type: Spontaneous
  Country: US (occurrence: US)
  Receive Date: 20190109
  Receipt Date: 20190109
  Transmission Date: 20190417
  Serious: No
  Sender: FDA-Public Use
  Company Number: US-GILEAD-2018-0382689

PATIENT
  Age: 49 Year
  Sex: Male

DRUGS (1)
  1. VEMLIDY [Suspect]
     Active Substance: TENOFOVIR ALAFENAMIDE FUMARATE
     Indication: PRODUCT USED FOR UNKNOWN INDICATION
     Dosage: 1 DF (TOOK 3 DOSES PRIOR TO EVENT ONSET)
     Route: 065

REACTIONS (4)
  - Vomiting [Unknown]
  - Influenza like illness [Unknown]
  - Diarrhoea [Unknown]
  - Chromaturia [Unknown]
